FAERS Safety Report 7607496-2 (Version None)
Quarter: 2011Q3

REPORT INFORMATION
  Report Type: 
  Country: None (occurrence: None)
  Receive Date: 20110713
  Receipt Date: 20110707
  Transmission Date: 20111222
  Serious: Yes (Other)
  Sender: FDA-Public Use
  Company Number: FR-GILEAD-2010-0027070

PATIENT
  Sex: Female

DRUGS (7)
  1. PROGRAF [Concomitant]
     Indication: RENAL TRANSPLANT
     Dates: start: 20040604
  2. VIREAD [Suspect]
     Indication: HEPATITIS B
     Route: 048
     Dates: start: 20080908
  3. AZATHIOPRINE SODIUM [Suspect]
     Indication: RENAL TRANSPLANT
     Dates: start: 20040604
  4. ZEFFIX [Concomitant]
     Dates: end: 20060201
  5. ASPEGIC 325 [Concomitant]
     Indication: THROMBOSIS PROPHYLAXIS
  6. ZEFFIX [Concomitant]
     Dates: start: 20070801, end: 20080901
  7. FERROUS SULFATE TAB [Concomitant]

REACTIONS (1)
  - ABORTION SPONTANEOUS [None]
